FAERS Safety Report 16903221 (Version 1)
Quarter: 2019Q4

REPORT INFORMATION
  Report Type: Spontaneous
  Country: US (occurrence: US)
  Receive Date: 20190816
  Receipt Date: 20190816
  Transmission Date: 20200122
  Serious: Yes (Hospitalization)
  Sender: FDA-Public Use
  Company Number: None

PATIENT
  Age: 59 Year
  Sex: Female

DRUGS (10)
  1. PAROXETINE. [Concomitant]
     Active Substance: PAROXETINE
  2. DIGOXIN. [Concomitant]
     Active Substance: DIGOXIN
  3. OPSUMIT [Suspect]
     Active Substance: MACITENTAN
     Indication: PULMONARY ARTERIAL HYPERTENSION
     Route: 048
     Dates: start: 201710
  4. FUOSEMIDE [Concomitant]
     Active Substance: FUROSEMIDE
  5. FAMOTIDINE. [Concomitant]
     Active Substance: FAMOTIDINE
  6. MORPHINE [Concomitant]
     Active Substance: MORPHINE
  7. VELETRI [Concomitant]
     Active Substance: EPOPROSTENOL
  8. SPIRONOLACTONE. [Concomitant]
     Active Substance: SPIRONOLACTONE
  9. K-TAB [Concomitant]
     Active Substance: POTASSIUM CHLORIDE
  10. METOLAZONE. [Concomitant]
     Active Substance: METOLAZONE

REACTIONS (5)
  - Abdominal pain [None]
  - Clostridium difficile infection [None]
  - Claustrophobia [None]
  - Anxiety [None]
  - Cholecystitis [None]

NARRATIVE: CASE EVENT DATE: 20190719
